FAERS Safety Report 24056361 (Version 1)
Quarter: 2024Q3

REPORT INFORMATION
  Report Type: 
  Country: US (occurrence: US)
  Receive Date: 20240705
  Receipt Date: 20240705
  Transmission Date: 20241017
  Serious: Yes (Other)
  Sender: CB FLEET
  Company Number: US-PRESTIGE-202406-US-002083

PATIENT
  Age: 77 Year
  Sex: Male

DRUGS (1)
  1. MINERAL OIL [Suspect]
     Active Substance: MINERAL OIL
     Indication: Constipation
     Dosage: NIGHTLY
     Route: 048

REACTIONS (1)
  - Pneumonia lipoid [Recovering/Resolving]
